FAERS Safety Report 19924981 (Version 2)
Quarter: 2021Q4

REPORT INFORMATION
  Report Type: Spontaneous
  Country: AR (occurrence: AR)
  Receive Date: 20211006
  Receipt Date: 20211014
  Transmission Date: 20220303
  Serious: Yes (Death, Hospitalization)
  Sender: FDA-Public Use
  Company Number: NVSC2021AR228093

PATIENT
  Age: 87 Year
  Sex: Male

DRUGS (2)
  1. VALSARTAN [Suspect]
     Active Substance: VALSARTAN
     Indication: Congestive cardiomyopathy
     Dosage: UNK, QD (DOSE 2 UNITS NOT PROVIDED)
     Route: 065
  2. VALSARTAN [Suspect]
     Active Substance: VALSARTAN
     Dosage: 1 DF, BID(IN THE MORNING AND IN THE AFTERNOON)
     Route: 048

REACTIONS (8)
  - Myocardial infarction [Fatal]
  - Cardiac arrest [Fatal]
  - Generalised oedema [Unknown]
  - Oedema [Unknown]
  - Fluid retention [Recovered/Resolved]
  - Renal impairment [Recovered/Resolved]
  - Discomfort [Unknown]
  - Drug ineffective [Unknown]

NARRATIVE: CASE EVENT DATE: 20180701
